FAERS Safety Report 8665803 (Version 3)
Quarter: 2014Q2

REPORT INFORMATION
  Report Type: Report from Study
  Country: JP (occurrence: JP)
  Receive Date: 20120716
  Receipt Date: 20140515
  Transmission Date: 20141212
  Serious: Yes (Other)
  Sender: FDA-Public Use
  Company Number: JP-VERTEX PHARMACEUTICALS INC.-AE-2012-005828

PATIENT
  Age: 64 Year
  Sex: Female

DRUGS (17)
  1. VX-950 (TELAPREVIR) [Suspect]
     Indication: CHRONIC HEPATITIS C
     Dosage: 1500 MG, QD
     Route: 048
     Dates: start: 20120117, end: 20120410
  2. PEGINTERFERON ALFA-2B [Suspect]
     Indication: CHRONIC HEPATITIS C
     Dosage: 1.5 ?G/KG, QW
     Route: 058
     Dates: start: 20120117, end: 20120703
  3. REBETOL [Suspect]
     Indication: CHRONIC HEPATITIS C
     Dosage: 400 MG, QD
     Route: 048
     Dates: start: 20120117, end: 20120409
  4. REBETOL [Suspect]
     Dosage: 200 MG, QD
     Route: 048
     Dates: start: 20120410, end: 20120501
  5. REBETOL [Suspect]
     Dosage: 300 MG, QD
     Route: 048
     Dates: start: 20120502, end: 20120508
  6. REBETOL [Suspect]
     Dosage: 400 MG, QD
     Route: 048
     Dates: start: 20120509, end: 20120515
  7. REBETOL [Suspect]
     Dosage: 600 MG, QD
     Route: 048
     Dates: start: 20120516, end: 20120605
  8. REBETOL [Suspect]
     Dosage: 800 MG, QD
     Route: 048
     Dates: start: 20120606, end: 20120703
  9. FLUITRAN [Concomitant]
     Dosage: 1 MG, QD
     Route: 048
     Dates: end: 20120228
  10. FLUITRAN [Concomitant]
     Dosage: 1 MG, QD
     Route: 048
  11. PURSENNID [Concomitant]
     Dosage: 36 MG, QD
     Route: 048
  12. MYSLEE [Concomitant]
     Dosage: 10 MG, QD
     Route: 048
  13. EVISTA [Concomitant]
     Dosage: 60 MG, QD
     Route: 048
     Dates: start: 20120117, end: 20120703
  14. XYZAL [Concomitant]
     Dosage: 5 MG, QD
     Route: 048
     Dates: start: 20120117, end: 20120320
  15. XYZAL [Concomitant]
     Dosage: 10 MG, QD
     Route: 048
     Dates: start: 20120321, end: 20120411
  16. SELBEX [Concomitant]
     Dosage: 1.5 MG, QD
     Route: 048
     Dates: start: 20120117, end: 20120703
  17. AMLODIN [Concomitant]
     Dosage: 2.5 MG, QD
     Route: 048

REACTIONS (2)
  - White blood cell count decreased [Recovering/Resolving]
  - Anaemia [Recovering/Resolving]
